FAERS Safety Report 9771867 (Version 1)
Quarter: 2013Q4

REPORT INFORMATION
  Report Type: Spontaneous
  Country: US (occurrence: US)
  Receive Date: 20131219
  Receipt Date: 20131219
  Transmission Date: 20140711
  Serious: Yes (Hospitalization)
  Sender: FDA-Public Use
  Company Number: US-BAXTER-2013BAX050326

PATIENT
  Age: 48 Year
  Sex: Male

DRUGS (4)
  1. DIANEAL LOW CALCIUM [Suspect]
     Indication: PERITONEAL DIALYSIS
     Route: 033
     Dates: start: 2011, end: 20131009
  2. DIANEAL LOW CALCIUM [Suspect]
     Route: 033
     Dates: start: 20131208
  3. DIANEAL LOW CALCIUM (ULTRABAG) [Suspect]
     Indication: PERITONEAL DIALYSIS
     Route: 033
     Dates: end: 20131009
  4. DIANEAL LOW CALCIUM (ULTRABAG) [Suspect]
     Route: 033
     Dates: start: 20131208

REACTIONS (4)
  - Upper limb fracture [Recovering/Resolving]
  - Ankle fracture [Recovering/Resolving]
  - Spinal cord injury [Recovering/Resolving]
  - Road traffic accident [Recovering/Resolving]
